FAERS Safety Report 11708005 (Version 1)
Quarter: 2015Q4

REPORT INFORMATION
  Report Type: Report from Study
  Country: US (occurrence: US)
  Receive Date: 20151107
  Receipt Date: 20151107
  Transmission Date: 20160304
  Serious: Yes (Other)
  Sender: FDA-Public Use
  Company Number: PHEH2015US022390

PATIENT
  Age: 64 Year
  Sex: Female
  Weight: 57.14 kg

DRUGS (1)
  1. GILENYA [Suspect]
     Active Substance: FINGOLIMOD HYDROCHLORIDE
     Indication: MULTIPLE SCLEROSIS
     Dosage: 0.5 MG, QD
     Route: 048
     Dates: start: 20110926

REACTIONS (8)
  - Gastrooesophageal reflux disease [Unknown]
  - Osteopenia [Unknown]
  - Heart rate increased [Unknown]
  - Arthralgia [Unknown]
  - Dyspepsia [Unknown]
  - Blood pressure increased [Unknown]
  - Headache [Unknown]
  - Vision blurred [Unknown]

NARRATIVE: CASE EVENT DATE: 20150405
